FAERS Safety Report 10422666 (Version 2)
Quarter: 2015Q3

REPORT INFORMATION
  Report Type: Spontaneous
  Country: US (occurrence: US)
  Receive Date: 20140902
  Receipt Date: 20150814
  Transmission Date: 20151125
  Serious: Yes (Death, Hospitalization)
  Sender: FDA-Public Use
  Company Number: US-AUROBINDO-AUR-APL-2014-09191

PATIENT
  Age: 35 Year
  Sex: Female
  Weight: 82.5 kg

DRUGS (1)
  1. CITALOPRAM [Suspect]
     Active Substance: CITALOPRAM HYDROBROMIDE
     Indication: PRODUCT USED FOR UNKNOWN INDICATION
     Dosage: UNK
     Route: 065

REACTIONS (13)
  - Blood creatinine increased [Unknown]
  - Serotonin syndrome [Fatal]
  - Cardiac arrest [Fatal]
  - Electrocardiogram QT prolonged [Unknown]
  - Pulse absent [Unknown]
  - Torsade de pointes [Fatal]
  - Cyanosis [Unknown]
  - Tachycardia [Fatal]
  - Dyskinesia [Unknown]
  - Transaminases increased [Unknown]
  - Blood cannabinoids increased [Unknown]
  - Seizure [Fatal]
  - Intentional overdose [Fatal]
